FAERS Safety Report 7541171-8 (Version None)
Quarter: 2011Q2

REPORT INFORMATION
  Report Type: 
  Country: None (occurrence: None)
  Receive Date: 20110610
  Receipt Date: 20110531
  Transmission Date: 20111010
  Serious: Yes (Disabling)
  Sender: FDA-Public Use
  Company Number: AU-NICOBRDEV-2011-02451

PATIENT
  Age: 63 Year
  Sex: Female
  Weight: 70 kg

DRUGS (7)
  1. OXYTROL [Suspect]
     Indication: PRODUCT USED FOR UNKNOWN INDICATION
     Dosage: 3.9 MG, DAILY (1 PATCH 2//WEEK) APPROX 6 MONTHS DURATION OF THERAPY
     Route: 062
     Dates: start: 20100101
  2. OSTELIN                            /00107901/ [Concomitant]
     Indication: VITAMIN D DEFICIENCY
     Dosage: 1000 IU DAILY
     Route: 048
  3. VITAMIIN C [Concomitant]
     Indication: PRODUCT USED FOR UNKNOWN INDICATION
     Dosage: 500 MG, DAILY
     Route: 048
  4. UNSPECIFIED HERBAL [Concomitant]
     Indication: PRODUCT USED FOR UNKNOWN INDICATION
     Dosage: UNK
  5. LIPITOR [Concomitant]
     Indication: HYPERCHOLESTEROLAEMIA
     Dosage: 40 MG, DAILY
     Route: 048
  6. GLUCOSAMINE HYDROCHLORIDE [Concomitant]
     Indication: ARTHRITIS
     Dosage: 500 MG, DAILY
     Route: 048
  7. ESTRADIOL [Concomitant]
     Indication: HORMONE REPLACEMENT THERAPY
     Dosage: 75 MCG TWICE WEEKLY
     Route: 062

REACTIONS (2)
  - DEAFNESS [None]
  - TINNITUS [None]
